FAERS Safety Report 25026450 (Version 3)
Quarter: 2025Q4

REPORT INFORMATION
  Report Type: Spontaneous
  Country: EU (occurrence: EU)
  Receive Date: 20250301
  Receipt Date: 20251211
  Transmission Date: 20260118
  Serious: Yes (Hospitalization, Other)
  Sender: AUROBINDO
  Company Number: EU-Accord-467993

PATIENT
  Age: 75 Year
  Sex: Male
  Weight: 88 kg

DRUGS (8)
  1. CARBOPLATIN [Suspect]
     Active Substance: CARBOPLATIN
     Indication: Lung neoplasm malignant
     Dosage: 320.79 MILLIGRAM (5 AUC, 320.79MG, Q3W, IV DRIP)
  2. CARBOPLATIN [Suspect]
     Active Substance: CARBOPLATIN
     Dosage: 320.79 MILLIGRAM (5AUC, 320.79MG, Q3W, 2 VIALS EXPIRED ON 30-APR-2025,BUT 1VIAL ON NOV-2024 (150MG/15ML), IV DRIP)
     Dates: start: 20241210, end: 20241210
  3. CARBOPLATIN [Suspect]
     Active Substance: CARBOPLATIN
     Dosage: 320.79 MILLIGRAM (5 AUC, 320.79 MG, Q3W, IV DRIP)
     Dates: start: 20250102, end: 20250102
  4. ETOPOSIDE [Suspect]
     Active Substance: ETOPOSIDE
     Indication: Lung neoplasm malignant
     Dosage: 200 MILLIGRAM (Q3W, D1-D3, IV DRIP)
     Dates: start: 20241029, end: 20250104
  5. VALPROIC ACID [Concomitant]
     Active Substance: VALPROIC ACID
     Indication: Depression
     Dosage: 500 MILLIGRAM, EVERY NIGHT
  6. ALLOPURINOL [Concomitant]
     Active Substance: ALLOPURINOL
     Indication: Hypertension
     Dosage: 100 MICROGRAM, DAILY
  7. DOXAZOSIN [Concomitant]
     Active Substance: DOXAZOSIN MESYLATE
     Indication: Hypertension
     Dosage: 4 MILLIGRAM, EVERY TEN DAYS
     Route: 065
  8. QUETIAPINE [Concomitant]
     Active Substance: QUETIAPINE
     Indication: Depression
     Dosage: 100 MILLIGRAM, DAILY

REACTIONS (4)
  - Anaemia [Recovered/Resolved]
  - Platelet count decreased [Recovered/Resolved]
  - Renal failure [Unknown]
  - Expired product administered [Unknown]

NARRATIVE: CASE EVENT DATE: 20241210
